FAERS Safety Report 6711286-2 (Version None)
Quarter: 2010Q2

REPORT INFORMATION
  Report Type: 
  Country: None (occurrence: None)
  Receive Date: 20100505
  Receipt Date: 20100426
  Transmission Date: 20101027
  Serious: Yes (Death)
  Sender: FDA-Public Use
  Company Number: DE-BRISTOL-MYERS SQUIBB COMPANY-15087430

PATIENT
  Age: 66 Year
  Sex: Male

DRUGS (4)
  1. ERBITUX [Suspect]
     Indication: COLORECTAL CANCER
     Route: 042
  2. FOLINIC ACID [Suspect]
     Indication: COLORECTAL CANCER
     Route: 042
  3. FLUOROURACIL [Suspect]
     Indication: COLORECTAL CANCER
     Route: 042
  4. IRINOTECAN HCL [Suspect]
     Indication: COLORECTAL CANCER
     Route: 042

REACTIONS (1)
  - PNEUMONIA [None]
